FAERS Safety Report 22734248 (Version 4)
Quarter: 2023Q4

REPORT INFORMATION
  Report Type: Spontaneous
  Country: JP (occurrence: JP)
  Receive Date: 20230721
  Receipt Date: 20231218
  Transmission Date: 20240109
  Serious: Yes (Death, Hospitalization)
  Sender: FDA-Public Use
  Company Number: JP-002147023-NVSJ2023JP011465

PATIENT
  Age: 54 Year
  Sex: Male

DRUGS (1)
  1. LUTATHERA [Suspect]
     Active Substance: LUTETIUM OXODOTREOTIDE LU-177
     Indication: Pancreatic neuroendocrine tumour metastatic
     Dosage: UNK
     Route: 042
     Dates: start: 202305

REACTIONS (3)
  - Seizure [Fatal]
  - Pneumonia [Unknown]
  - Epilepsy [Unknown]

NARRATIVE: CASE EVENT DATE: 20230701
